FAERS Safety Report 5355561-5 (Version None)
Quarter: 2007Q2

REPORT INFORMATION
  Report Type: 
  Country: None (occurrence: None)
  Receive Date: 20070525
  Receipt Date: 20070219
  Transmission Date: 20071010
  Serious: Yes (Life-Threatening)
  Sender: FDA-Public Use
  Company Number: WAES 0702USA03527

PATIENT
  Age: 81 Year
  Sex: Female
  Weight: 67.586 kg

DRUGS (14)
  1. VYTORIN [Suspect]
     Indication: HYPERCHOLESTEROLAEMIA
     Dosage: 10-40 MG/HS/PO
     Route: 048
     Dates: start: 20060628, end: 20070131
  2. ALLEGRA [Concomitant]
  3. CALTRATE + D [Concomitant]
  4. FORTEO [Concomitant]
  5. HUMALOG [Concomitant]
  6. LANTUS [Concomitant]
  7. MOBIC [Concomitant]
  8. NEURONTIN [Concomitant]
  9. PROTONIX [Concomitant]
  10. TOPROL-XL [Concomitant]
  11. VASOTEC [Concomitant]
  12. ASPIRIN [Concomitant]
  13. HYDROCHLOROTHIAZIDE [Concomitant]
  14. MULTIVITAMIN [Concomitant]

REACTIONS (1)
  - RHABDOMYOLYSIS [None]
